FAERS Safety Report 9618327 (Version 1)
Quarter: 2013Q4

REPORT INFORMATION
  Report Type: Spontaneous
  Country: GB (occurrence: GB)
  Receive Date: 20131014
  Receipt Date: 20131014
  Transmission Date: 20140711
  Serious: Yes (Hospitalization)
  Sender: FDA-Public Use
  Company Number: PHHY2013GB109864

PATIENT
  Age: 12 Year
  Sex: Female

DRUGS (8)
  1. METHOTREXATE [Suspect]
     Dosage: UNK UKN, UNK
  2. CERVARIX [Suspect]
     Indication: PROPHYLAXIS
     Dosage: 1 DF (1INJ SINGLE DOSE)
     Route: 065
     Dates: start: 201010, end: 201010
  3. PREDNISOLONE [Suspect]
     Dosage: UNK UKN, UNK
  4. PREDNISOLONE [Suspect]
     Dosage: 5 MG, UNK
  5. PREDNISOLONE [Suspect]
     Dosage: 100 MG, (DRIP)
  6. PREDNISOLONE [Suspect]
     Dosage: 20 MG
  7. ANAKINRA [Suspect]
     Dosage: 100 MG, DAILY
  8. TOCILIZUMAB [Suspect]
     Dosage: UNK UKN, UNK
     Route: 065

REACTIONS (19)
  - Juvenile idiopathic arthritis [Unknown]
  - Tonsillitis [Unknown]
  - Weight decreased [Unknown]
  - Immobile [Unknown]
  - Somnolence [Unknown]
  - Pain [Unknown]
  - Local swelling [Unknown]
  - Hyperglycaemia [Unknown]
  - Joint swelling [Unknown]
  - Malaise [Unknown]
  - Pericardial effusion [Unknown]
  - Cough [Unknown]
  - Fatigue [Unknown]
  - Pyrexia [Unknown]
  - Arthralgia [Unknown]
  - Rash [Unknown]
  - Dyspnoea [Unknown]
  - Pruritus [Unknown]
  - Infection [Unknown]
